FAERS Safety Report 21269352 (Version 2)
Quarter: 2022Q4

REPORT INFORMATION
  Report Type: Report from Study
  Country: CO (occurrence: CO)
  Receive Date: 20220830
  Receipt Date: 20221011
  Transmission Date: 20230112
  Serious: Yes (Other)
  Sender: FDA-Public Use
  Company Number: CO-NOVARTISPH-NVSC2020CO338457

PATIENT
  Sex: Female

DRUGS (7)
  1. TASIGNA [Suspect]
     Active Substance: NILOTINIB
     Indication: Chronic myeloid leukaemia
     Dosage: 300 MG, Q12H
     Route: 048
     Dates: start: 20201223
  2. TASIGNA [Suspect]
     Active Substance: NILOTINIB
     Dosage: 600 MG, QD
     Route: 048
  3. TASIGNA [Suspect]
     Active Substance: NILOTINIB
     Dosage: 300 MG, QD
     Route: 048
  4. TASIGNA [Suspect]
     Active Substance: NILOTINIB
     Dosage: 300 MG, Q12H
     Route: 048
  5. TASIGNA [Suspect]
     Active Substance: NILOTINIB
     Dosage: 300 MG (1 IN THE MORNING AND 1 IN THE NOON)
     Route: 048
  6. FERROUS SULFATE [Suspect]
     Active Substance: FERROUS SULFATE
     Indication: Product used for unknown indication
     Dosage: UNK
     Route: 065
  7. ALLOPURINOL [Concomitant]
     Active Substance: ALLOPURINOL
     Indication: Product used for unknown indication
     Dosage: UNK
     Route: 065

REACTIONS (33)
  - Platelet count decreased [Unknown]
  - Haemorrhage [Unknown]
  - Haemoglobin decreased [Unknown]
  - Renal failure [Unknown]
  - Toxicity to various agents [Unknown]
  - Fear [Unknown]
  - Feeling abnormal [Unknown]
  - Hypoaesthesia [Unknown]
  - Sleep disorder [Unknown]
  - Swelling [Unknown]
  - Stress [Unknown]
  - Tongue disorder [Unknown]
  - Alopecia [Unknown]
  - Feeling of despair [Unknown]
  - Gait disturbance [Unknown]
  - Pruritus [Not Recovered/Not Resolved]
  - Swelling face [Unknown]
  - Headache [Unknown]
  - Pain [Unknown]
  - Pain in extremity [Unknown]
  - Fatigue [Unknown]
  - Asthenia [Unknown]
  - Hypersensitivity [Unknown]
  - Nausea [Unknown]
  - Rash [Unknown]
  - Paraesthesia [Unknown]
  - Influenza [Unknown]
  - Anxiety [Unknown]
  - Malaise [Unknown]
  - Dry skin [Unknown]
  - Chest pain [Unknown]
  - Back pain [Unknown]
  - Inappropriate schedule of product administration [Unknown]
